FAERS Safety Report 6097611-7 (Version None)
Quarter: 2009Q1

REPORT INFORMATION
  Report Type: 
  Country: None (occurrence: None)
  Receive Date: 20090227
  Receipt Date: 20090102
  Transmission Date: 20090719
  Serious: No
  Sender: FDA-Public Use
  Company Number: A0762065A

PATIENT
  Age: 51 Year
  Sex: Female

DRUGS (18)
  1. IMITREX [Suspect]
     Indication: MIGRAINE
     Dosage: 6MG AS REQUIRED
     Route: 058
     Dates: start: 20081201, end: 20081201
  2. IMITREX [Suspect]
  3. ANGELIQ [Concomitant]
  4. TIZANIDINE HCL [Concomitant]
  5. AMITIZA [Concomitant]
  6. VYTORIN [Concomitant]
  7. TOPAMAX [Concomitant]
  8. VICODIN ES [Concomitant]
  9. PIROXICAM [Concomitant]
  10. SYNTHROID [Concomitant]
  11. ZOLOFT [Concomitant]
  12. PREVACID [Concomitant]
  13. LACTULOSE [Concomitant]
  14. SLOW-FE [Concomitant]
  15. CLARINEX [Concomitant]
  16. SINGULAIR [Concomitant]
  17. CALCIUM 600MG [Concomitant]
  18. VITAMIN B COMPLEX CAP [Concomitant]

REACTIONS (4)
  - DRUG INEFFECTIVE [None]
  - INJECTION SITE HAEMATOMA [None]
  - PRODUCT QUALITY ISSUE [None]
  - THERAPEUTIC RESPONSE DECREASED [None]
